FAERS Safety Report 8186879-9 (Version None)
Quarter: 2012Q1

REPORT INFORMATION
  Report Type: 
  Country: None (occurrence: None)
  Receive Date: 20120213
  Receipt Date: 20111108
  Transmission Date: 20120608
  Serious: No
  Sender: FDA-Public Use
  Company Number: 1000014682

PATIENT
  Age: 51 Year
  Sex: Female

DRUGS (7)
  1. GABAPENTIN [Concomitant]
  2. XANAX [Concomitant]
  3. HYDROCODONE BITARTRATE [Concomitant]
  4. SAVELLA [Suspect]
     Dosage: ORAL
     Route: 048
     Dates: start: 20100430
  5. SAVELLA [Suspect]
     Indication: FIBROMYALGIA
     Dosage: 12.5 MG (12.5 MG, 1 IN 1D); 25 MG (12.5 MG, 2 IN 1D); 50 MG (25 MG, 2 IN 1D), ORAL
     Route: 048
     Dates: start: 20100426, end: 20100429
  6. SAVELLA [Suspect]
     Indication: FIBROMYALGIA
     Dosage: 12.5 MG (12.5 MG, 1 IN 1D); 25 MG (12.5 MG, 2 IN 1D); 50 MG (25 MG, 2 IN 1D), ORAL
     Route: 048
     Dates: start: 20100423, end: 20100423
  7. SAVELLA [Suspect]
     Indication: FIBROMYALGIA
     Dosage: 12.5 MG (12.5 MG, 1 IN 1D); 25 MG (12.5 MG, 2 IN 1D); 50 MG (25 MG, 2 IN 1D), ORAL
     Route: 048
     Dates: start: 20100424, end: 20100425

REACTIONS (3)
  - ANGER [None]
  - IRRITABILITY [None]
  - AGITATION [None]
